FAERS Safety Report 12647138 (Version 1)
Quarter: 2016Q3

REPORT INFORMATION
  Report Type: Spontaneous
  Country: US (occurrence: None)
  Receive Date: 20160811
  Receipt Date: 20160811
  Transmission Date: 20161109
  Serious: Yes (Other)
  Sender: FDA-Public Use
  Company Number: None

PATIENT
  Age: 68 Year
  Sex: Male

DRUGS (1)
  1. ALLOPURINO, 300 MG [Suspect]
     Active Substance: ALLOPURINOL
     Indication: GOUT
     Route: 048
     Dates: start: 20160711, end: 20160719

REACTIONS (6)
  - Eye irritation [None]
  - Skin exfoliation [None]
  - Burning sensation [None]
  - Erythema [None]
  - Rash [None]
  - Eye swelling [None]

NARRATIVE: CASE EVENT DATE: 20160714
